FAERS Safety Report 8322325-X (Version None)
Quarter: 2012Q2

REPORT INFORMATION
  Report Type: 
  Country: None (occurrence: None)
  Receive Date: 20120430
  Receipt Date: 20120424
  Transmission Date: 20120825
  Serious: Yes (Other)
  Sender: FDA-Public Use
  Company Number: PHFR2012GB000603

PATIENT
  Sex: Female

DRUGS (3)
  1. CLOZARIL [Suspect]
     Indication: SCHIZOPHRENIA
     Dosage: 350 MG, DAILY (50 MG MORNING AND 300 MG AT NIGHT)
     Route: 048
     Dates: start: 20120112
  2. PROPRANOLOL [Concomitant]
     Indication: AKATHISIA
     Dosage: 40 MG, DAILY
     Route: 048
  3. VALPROATE SODIUM [Concomitant]
     Indication: MYOCLONUS
     Dosage: 500 MG, DAILY
     Route: 048

REACTIONS (6)
  - ELECTROCARDIOGRAM QT PROLONGED [None]
  - HEART RATE INCREASED [None]
  - NON-CARDIAC CHEST PAIN [None]
  - ANTIPSYCHOTIC DRUG LEVEL INCREASED [None]
  - OBESITY [None]
  - REFLUX GASTRITIS [None]
